FAERS Safety Report 8046654-2 (Version None)
Quarter: 2012Q1

REPORT INFORMATION
  Report Type: 
  Country: None (occurrence: None)
  Receive Date: 20120114
  Receipt Date: 20120110
  Transmission Date: 20120608
  Serious: No
  Sender: FDA-Public Use
  Company Number: US-BAYER-2012-003706

PATIENT
  Age: 72 Year
  Sex: Female
  Weight: 79 kg

DRUGS (6)
  1. PRILOSEC [Concomitant]
  2. SYNTHROID [Concomitant]
  3. ALEVE (CAPLET) [Suspect]
     Dosage: 2 DF, UNK
     Route: 048
     Dates: start: 20030101
  4. METFORMIN HCL [Concomitant]
  5. LOPRESSOR [Concomitant]
  6. ELMIRON [Concomitant]

REACTIONS (1)
  - NO ADVERSE EVENT [None]
